FAERS Safety Report 14625826 (Version 1)
Quarter: 2018Q1

REPORT INFORMATION
  Report Type: Spontaneous
  Country: US (occurrence: US)
  Receive Date: 20180312
  Receipt Date: 20180312
  Transmission Date: 20180509
  Serious: No
  Sender: FDA-Public Use
  Company Number: US-ABBVIE-16P-163-1714046-00

PATIENT
  Age: 30 Year
  Sex: Female

DRUGS (1)
  1. LUPRON [Suspect]
     Active Substance: LEUPROLIDE ACETATE
     Indication: PRODUCT USED FOR UNKNOWN INDICATION
     Route: 050
     Dates: start: 201508, end: 201602

REACTIONS (7)
  - Hyperhidrosis [Unknown]
  - Pain [Unknown]
  - Endometriosis [Unknown]
  - Drug ineffective [Unknown]
  - Back pain [Unknown]
  - Sciatica [Unknown]
  - Weight increased [Unknown]

NARRATIVE: CASE EVENT DATE: 2016
